FAERS Safety Report 8971401 (Version 1)
Quarter: 2012Q4

REPORT INFORMATION
  Report Type: 
  Country: IT (occurrence: IT)
  Receive Date: 20121218
  Receipt Date: 20121218
  Transmission Date: 20130627
  Serious: Yes (Other)
  Sender: FDA-Public Use
  Company Number: IT-MPIJNJ-2012-08803

PATIENT

DRUGS (2)
  1. VELCADE [Suspect]
     Indication: MULTIPLE MYELOMA
     Dosage: 2.07 mg, Cyclic
     Route: 065
     Dates: start: 20120718, end: 20121123
  2. DEXAMETHASONE [Concomitant]
     Indication: MULTIPLE MYELOMA
     Dosage: 40 mg, UNK

REACTIONS (5)
  - Head injury [Recovering/Resolving]
  - Syncope [Not Recovered/Not Resolved]
  - Hypotension [Recovering/Resolving]
  - Fall [Recovering/Resolving]
  - Panic attack [Recovering/Resolving]
